FAERS Safety Report 9507113 (Version 2)
Quarter: 2013Q4

REPORT INFORMATION
  Report Type: Spontaneous
  Country: SG (occurrence: None)
  Receive Date: 20130904
  Receipt Date: 20131011
  Transmission Date: 20140711
  Serious: Yes (Hospitalization, Other)
  Sender: FDA-Public Use
  Company Number: SYM-2013-10219

PATIENT
  Age: 45 Year
  Sex: Female

DRUGS (10)
  1. 5 FU [Suspect]
     Indication: COLORECTAL CANCER METASTATIC
     Route: 040
     Dates: start: 20130418, end: 20130418
  2. BLINDED THERAPY (OTHER THERAPEUTIC PRODUCTS) (SOLUTION FOR INFUSION) (NULL) [Suspect]
     Indication: COLORECTAL CANCER METASTATIC
     Route: 040
     Dates: start: 20130418, end: 20130418
  3. IRINOTECAN [Suspect]
     Indication: COLORECTAL CANCER METASTATIC
     Route: 040
     Dates: start: 20130418, end: 20130418
  4. LEUCOVORIN (FOLINIC ACID) (SOLUTION FOR INFUSION) (FOLINIC ACID) [Suspect]
     Indication: COLORECTAL CANCER METASTATIC
     Route: 040
     Dates: start: 20130418, end: 20130418
  5. ENTECAVIR (ENTECAVIR) (ENTECAVIR) [Concomitant]
  6. HYOSCINE BUTYLBROMIDE (HYOSCINE BUTYLBROMIDE) (HYOSCINE BUTYLBROMIDE) [Concomitant]
  7. TRAMADOL HYDROCHLORIDE (TRAMADOL HYDROCHLORIDE) (TRAMADOL HYDROCHLORIDE) [Concomitant]
  8. CETIRIZINE HYDROCHLORIDE (CETIRIZINE HYDROCHLORIDE) (CETIRIZINE HYDROCHLORIDE0 [Concomitant]
  9. CIPROFLOXACIN (CIPROFLOXACIN HYDROCHLORIDE) (CIPROFLOXACIN HYDROCHLORIDE) [Concomitant]
  10. FLUCONAZOLE (FLUCONAZOLE) (FLUCONAZOLE) [Concomitant]

REACTIONS (12)
  - Infection [None]
  - Urinary tract infection enterococcal [None]
  - Blood culture positive [None]
  - Escherichia infection [None]
  - Posterior reversible encephalopathy syndrome [None]
  - Small intestinal obstruction [None]
  - Platelet count increased [None]
  - Blood potassium decreased [None]
  - Blood magnesium decreased [None]
  - Blood sodium decreased [None]
  - Metastases to gastrointestinal tract [None]
  - Condition aggravated [None]
